FAERS Safety Report 8914983 (Version 2)
Quarter: 2013Q1

REPORT INFORMATION
  Report Type: Spontaneous
  Country: US (occurrence: US)
  Receive Date: 20121116
  Receipt Date: 20130129
  Transmission Date: 20140127
  Serious: No
  Sender: FDA-Public Use
  Company Number: US-009507513-1211USA006454

PATIENT
  Age: 62 Year
  Sex: Male

DRUGS (3)
  1. PEGINTRON [Suspect]
     Indication: HEPATITIS C
     Dosage: UNK
     Route: 058
     Dates: start: 20121016, end: 20121106
  2. RIBAVIRIN [Suspect]
     Route: 048
  3. PERCOCET [Concomitant]

REACTIONS (3)
  - Pulmonary fibrosis [Not Recovered/Not Resolved]
  - No therapeutic response [Unknown]
  - Dyspnoea [Not Recovered/Not Resolved]
